FAERS Safety Report 17441968 (Version 3)
Quarter: 2020Q2

REPORT INFORMATION
  Report Type: Report from Study
  Country: ES (occurrence: ES)
  Receive Date: 20200220
  Receipt Date: 20200424
  Transmission Date: 20200713
  Serious: Yes (Hospitalization)
  Sender: FDA-Public Use
  Company Number: ES-SHIRE-ES201928514

PATIENT

DRUGS (9)
  1. TEDUGLUTIDE [Suspect]
     Active Substance: TEDUGLUTIDE
     Dosage: 0.06 MILLILITER, 1X/DAY:QD
     Route: 058
     Dates: start: 20200421
  2. SEPTRIN PAEDIATRIC [Concomitant]
     Active Substance: SULFAMETHOXAZOLE\TRIMETHOPRIM
     Indication: ANTIBIOTIC PROPHYLAXIS
  3. TEDUGLUTIDE [Suspect]
     Active Substance: TEDUGLUTIDE
     Dosage: 0.06 MILLILITER, 1X/DAY:QD
     Route: 058
     Dates: start: 20190828, end: 20191215
  4. TEDUGLUTIDE [Suspect]
     Active Substance: TEDUGLUTIDE
     Dosage: UNK
     Route: 065
     Dates: start: 202001
  5. VITAMIN D3 [Concomitant]
     Active Substance: CHOLECALCIFEROL
     Indication: PRODUCT USED FOR UNKNOWN INDICATION
  6. FERROSOL [Concomitant]
     Indication: PRODUCT USED FOR UNKNOWN INDICATION
  7. APIRETAL [Concomitant]
     Active Substance: ACETAMINOPHEN
     Indication: PAIN
     Dosage: UNK
  8. URSOCHOL [Concomitant]
     Active Substance: URSODIOL
     Indication: PRODUCT USED FOR UNKNOWN INDICATION
  9. TEDUGLUTIDE [Suspect]
     Active Substance: TEDUGLUTIDE
     Indication: SHORT-BOWEL SYNDROME
     Dosage: 0.06 MILLILITER, 1X/DAY:QD
     Route: 058
     Dates: start: 20190828

REACTIONS (15)
  - Abdominal discomfort [Recovered/Resolved]
  - Decreased appetite [Recovered/Resolved]
  - Vomiting [Recovered/Resolved]
  - Injection site haemorrhage [Recovered/Resolved]
  - Muscle spasms [Recovered/Resolved]
  - Secretion discharge [Recovered/Resolved]
  - Device leakage [Recovering/Resolving]
  - Fatigue [Recovered/Resolved]
  - Gastrointestinal motility disorder [Unknown]
  - Fluid intake reduced [Recovering/Resolving]
  - Abdominal pain [Recovered/Resolved]
  - Abdominal distension [Recovered/Resolved]
  - Granuloma [Recovering/Resolving]
  - Hunger [Recovered/Resolved]
  - Gastrointestinal sounds abnormal [Recovered/Resolved]

NARRATIVE: CASE EVENT DATE: 20190828
